FAERS Safety Report 5579137-X (Version None)
Quarter: 2007Q4

REPORT INFORMATION
  Report Type: 
  Country: None (occurrence: None)
  Receive Date: 20071227
  Receipt Date: 20071227
  Transmission Date: 20080405
  Serious: Yes (Other)
  Sender: FDA-Public Use
  Company Number: None

PATIENT
  Sex: Female

DRUGS (2)
  1. ENOXAPARIN SODIUM [Suspect]
     Dosage: 70 MG Q 120 SQ
     Route: 058
  2. WARFARIN SODIUM [Suspect]
     Dosage: 5MG PO DAILY
     Route: 048

REACTIONS (4)
  - ABASIA [None]
  - CONTUSION [None]
  - HAEMATOMA [None]
  - PAIN IN EXTREMITY [None]
